FAERS Safety Report 8165413-3 (Version None)
Quarter: 2012Q1

REPORT INFORMATION
  Report Type: 
  Country: None (occurrence: None)
  Receive Date: 20120227
  Receipt Date: 20120216
  Transmission Date: 20120608
  Serious: Yes (Hospitalization, Other)
  Sender: FDA-Public Use
  Company Number: US-BAYER-2011-040184

PATIENT
  Age: 35 Year
  Sex: Female
  Weight: 84 kg

DRUGS (8)
  1. TOPAMAX [Concomitant]
     Dosage: UNK
     Route: 048
     Dates: start: 20090614
  2. MERIDIA [Concomitant]
     Indication: MIGRAINE
     Dosage: 10 MG, PRN
     Route: 048
     Dates: start: 20090614
  3. YAZ [Suspect]
     Dosage: UNK
     Dates: start: 20080601, end: 20090601
  4. DROSPIRENONE AND ETHINYL ESTRADIOL [Suspect]
     Dosage: UNK
     Dates: start: 20080601, end: 20090601
  5. MECLIZINE [Concomitant]
     Indication: DIZZINESS
     Dosage: 25 MG, PRN
     Route: 048
     Dates: start: 20090614
  6. XANAX [Concomitant]
     Indication: ANXIETY
     Dosage: UNK UNK, PRN
     Route: 048
     Dates: start: 20090614
  7. ALLEGRA [Concomitant]
     Dosage: 180 MG, QD
     Route: 048
     Dates: start: 20090614
  8. GAS-X [Concomitant]

REACTIONS (6)
  - ANXIETY [None]
  - CHOLECYSTITIS CHRONIC [None]
  - GALLBLADDER DISORDER [None]
  - INJURY [None]
  - PANCREATITIS [None]
  - PAIN [None]
